FAERS Safety Report 16692176 (Version 2)
Quarter: 2019Q3

REPORT INFORMATION
  Report Type: Spontaneous
  Country: ES (occurrence: ES)
  Receive Date: 20190812
  Receipt Date: 20190814
  Transmission Date: 20191004
  Serious: Yes (Hospitalization, Disabling)
  Sender: FDA-Public Use
  Company Number: ES-PFIZER INC-2019334438

PATIENT
  Age: 71 Year
  Sex: Male

DRUGS (2)
  1. CAPECITABINE. [Suspect]
     Active Substance: CAPECITABINE
     Indication: ADENOCARCINOMA OF COLON
     Dosage: UNK, CYCLIC (RECEIVED 8 CYCLES)
     Route: 065
     Dates: end: 201405
  2. OXALIPLATIN. [Suspect]
     Active Substance: OXALIPLATIN
     Indication: ADENOCARCINOMA OF COLON
     Dosage: UNK UNK, CYCLIC (RECEIVED 8 CYCLES)
     Route: 065
     Dates: end: 201405

REACTIONS (9)
  - Skin necrosis [Recovered/Resolved with Sequelae]
  - Thrombosis [Recovered/Resolved]
  - Muscle necrosis [Recovered/Resolved with Sequelae]
  - Fungal infection [Recovered/Resolved]
  - Osteonecrosis [Recovered/Resolved with Sequelae]
  - Mucormycosis [Recovered/Resolved with Sequelae]
  - Compartment syndrome [Recovered/Resolved with Sequelae]
  - Vascular skin disorder [Recovered/Resolved]
  - Lung infection [Recovered/Resolved]
